FAERS Safety Report 7320955-5 (Version None)
Quarter: 2011Q1

REPORT INFORMATION
  Report Type: 
  Country: None (occurrence: None)
  Receive Date: 20110228
  Receipt Date: 20110217
  Transmission Date: 20110831
  Serious: Yes (Other)
  Sender: FDA-Public Use
  Company Number: ES-JNJFOC-20110206156

PATIENT
  Age: 35 Year
  Sex: Male

DRUGS (3)
  1. INFLIXIMAB, RECOMBINANT [Suspect]
     Indication: CROHN'S DISEASE
     Route: 042
  2. AZATHIOPRINE [Concomitant]
     Indication: CROHN'S DISEASE
  3. INFLIXIMAB, RECOMBINANT [Suspect]
     Dosage: 2ND DOSE
     Route: 042

REACTIONS (1)
  - MENINGITIS LISTERIA [None]
